FAERS Safety Report 8307016-3 (Version None)
Quarter: 2012Q2

REPORT INFORMATION
  Report Type: 
  Country: None (occurrence: None)
  Receive Date: 20120424
  Receipt Date: 20120418
  Transmission Date: 20120825
  Serious: Yes (Other)
  Sender: FDA-Public Use
  Company Number: PHHY2012CA033967

PATIENT
  Sex: Female

DRUGS (3)
  1. INTERFERON [Concomitant]
  2. RIBAVIRIN [Concomitant]
  3. CLOZARIL [Suspect]
     Dosage: UNK UKN, UNK
     Dates: start: 20050614

REACTIONS (1)
  - HEPATITIS C [None]
